FAERS Safety Report 9368158 (Version 1)
Quarter: 2013Q2

REPORT INFORMATION
  Report Type: Spontaneous
  Country: US (occurrence: US)
  Receive Date: 20130625
  Receipt Date: 20130625
  Transmission Date: 20140414
  Serious: No
  Sender: FDA-Public Use
  Company Number: US-ASTELLAS-2013US003492

PATIENT
  Age: 58 Year
  Sex: Male

DRUGS (2)
  1. VESICARE [Suspect]
     Indication: PRODUCT USED FOR UNKNOWN INDICATION
     Dosage: 5 MG, UID/QD
     Route: 048
     Dates: start: 201303
  2. TAMSULOSIN [Concomitant]
     Indication: MICTURITION URGENCY
     Dosage: UNK
     Route: 065
     Dates: end: 201303

REACTIONS (2)
  - Pollakiuria [Unknown]
  - Micturition urgency [Unknown]
